FAERS Safety Report 8288392-7 (Version None)
Quarter: 2012Q2

REPORT INFORMATION
  Report Type: 
  Country: None (occurrence: None)
  Receive Date: 20120416
  Receipt Date: 20120409
  Transmission Date: 20120825
  Serious: Yes (Death)
  Sender: FDA-Public Use
  Company Number: PT-BAXTER-2012BH005247

PATIENT
  Sex: Male

DRUGS (1)
  1. EXTRANEAL [Suspect]
     Route: 033
     Dates: start: 20111101, end: 20120222

REACTIONS (3)
  - MALAISE [None]
  - HYPERTENSION [None]
  - DEATH [None]
